FAERS Safety Report 9770648 (Version 3)
Quarter: 2014Q2

REPORT INFORMATION
  Report Type: Report from Study
  Country: US (occurrence: US)
  Receive Date: 20131218
  Receipt Date: 20140415
  Transmission Date: 20141212
  Serious: Yes (Hospitalization)
  Sender: FDA-Public Use
  Company Number: US-GLAXOSMITHKLINE-A1053972A

PATIENT
  Sex: Female

DRUGS (9)
  1. LAPATINIB [Suspect]
     Indication: BREAST CANCER
     Route: 048
     Dates: start: 20130820, end: 20131114
  2. TRASTUZUMAB [Suspect]
     Indication: BREAST CANCER
     Dates: start: 20130820, end: 20131205
  3. PACLITAXEL [Suspect]
     Indication: BREAST CANCER
     Dates: start: 20130820
  4. ACETAMINOPHEN [Concomitant]
     Dates: start: 20130730, end: 20131206
  5. ANASTROZOLE [Concomitant]
  6. AZITHROMYCIN [Concomitant]
     Dates: start: 20131125
  7. IBUPROFEN [Concomitant]
     Dates: start: 20131003
  8. OLMESARTAN [Concomitant]
     Dates: start: 20130614
  9. SIMVASTATIN [Concomitant]
     Dates: start: 20131119

REACTIONS (3)
  - Hepatic failure [Recovered/Resolved]
  - Aspartate aminotransferase increased [Recovered/Resolved]
  - Alanine aminotransferase increased [Recovered/Resolved]
